FAERS Safety Report 8273269-3 (Version None)
Quarter: 2012Q2

REPORT INFORMATION
  Report Type: 
  Country: None (occurrence: None)
  Receive Date: 20120411
  Receipt Date: 20120329
  Transmission Date: 20120825
  Serious: Yes (Other)
  Sender: FDA-Public Use
  Company Number: PHHY2012FR026714

PATIENT
  Sex: Male

DRUGS (1)
  1. PARLODEL [Suspect]
     Indication: PROLACTINOMA
     Dosage: 2.5 MG, DAILY
     Route: 048
     Dates: start: 20100801, end: 20110308

REACTIONS (5)
  - IMPULSIVE BEHAVIOUR [None]
  - SEXUAL ABUSE [None]
  - FEELING GUILTY [None]
  - HYPERSEXUALITY [None]
  - LIBIDO INCREASED [None]
